FAERS Safety Report 24573757 (Version 1)
Quarter: 2024Q4

REPORT INFORMATION
  Report Type: Spontaneous
  Country: US (occurrence: US)
  Receive Date: 20241103
  Receipt Date: 20241103
  Transmission Date: 20250114
  Serious: Yes (Other)
  Sender: JOHNSON AND JOHNSON
  Company Number: US-JNJFOC-20241077468

PATIENT
  Age: 9 Year
  Sex: Male

DRUGS (10)
  1. RISPERDAL [Suspect]
     Active Substance: RISPERIDONE
     Indication: Autism spectrum disorder
     Dosage: VARYING DOSES OF 0.5 MG, 1 MG TWICE DAILY
     Route: 048
  2. RISPERDAL [Suspect]
     Active Substance: RISPERIDONE
     Indication: Behaviour disorder
  3. RISPERDAL [Suspect]
     Active Substance: RISPERIDONE
     Indication: Obsessive-compulsive disorder
  4. RISPERDAL [Suspect]
     Active Substance: RISPERIDONE
     Indication: Agitation
  5. RISPERDAL [Suspect]
     Active Substance: RISPERIDONE
     Indication: Tic
  6. RISPERDAL [Suspect]
     Active Substance: RISPERIDONE
     Indication: Anger
  7. RISPERDAL [Suspect]
     Active Substance: RISPERIDONE
     Indication: Aggression
  8. RISPERDAL [Suspect]
     Active Substance: RISPERIDONE
     Indication: Affective disorder
  9. RISPERDAL [Suspect]
     Active Substance: RISPERIDONE
     Indication: Anxiety
  10. RISPERDAL [Suspect]
     Active Substance: RISPERIDONE
     Indication: Sleep disorder

REACTIONS (3)
  - Diabetes mellitus [Recovered/Resolved]
  - Gynaecomastia [Not Recovered/Not Resolved]
  - Obesity [Recovering/Resolving]

NARRATIVE: CASE EVENT DATE: 20110801
